FAERS Safety Report 12697940 (Version 1)
Quarter: 2016Q3

REPORT INFORMATION
  Report Type: Spontaneous
  Country: CH (occurrence: CH)
  Receive Date: 20160830
  Receipt Date: 20160830
  Transmission Date: 20161109
  Serious: Yes (Life-Threatening, Hospitalization, Other)
  Sender: FDA-Public Use
  Company Number: CH-PFIZER INC-2016403602

PATIENT
  Age: 81 Year
  Sex: Male
  Weight: 79 kg

DRUGS (1)
  1. TAZOBAC [Suspect]
     Active Substance: PIPERACILLIN SODIUM\TAZOBACTAM SODIUM
     Dosage: 4.5 G, 3X/DAY
     Route: 041
     Dates: start: 20160815, end: 20160818

REACTIONS (5)
  - Prescribed overdose [Unknown]
  - Respiratory distress [Recovered/Resolved]
  - Diarrhoea [Unknown]
  - Altered state of consciousness [Recovering/Resolving]
  - Agitation [Recovered/Resolved]

NARRATIVE: CASE EVENT DATE: 201608
